FAERS Safety Report 5421741-3 (Version None)
Quarter: 2007Q3

REPORT INFORMATION
  Report Type: 
  Country: None (occurrence: None)
  Receive Date: 20070720
  Receipt Date: 20060516
  Transmission Date: 20080115
  Serious: Yes (Life-Threatening)
  Sender: FDA-Public Use
  Company Number: PHEH2006US06884

PATIENT
  Age: 1 Year
  Sex: Male

DRUGS (1)
  1. TRILEPTAL [Suspect]
     Indication: EPILEPSY
     Dates: start: 20060401

REACTIONS (5)
  - BLOOD CHLORIDE DECREASED [None]
  - BLOOD CORTISOL INCREASED [None]
  - CARBON DIOXIDE DECREASED [None]
  - CONVULSION [None]
  - HYPONATRAEMIA [None]
